FAERS Safety Report 8394293-6 (Version None)
Quarter: 2012Q1

REPORT INFORMATION
  Report Type: 
  Country: None (occurrence: None)
  Receive Date: 20120323
  Receipt Date: 20110504
  Transmission Date: 20120608
  Serious: Yes (Hospitalization)
  Sender: FDA-Public Use
  Company Number: 163-21880-11050705

PATIENT
  Age: 85 Year
  Sex: Male

DRUGS (3)
  1. REVLIMID [Suspect]
     Indication: MULTIPLE MYELOMA
     Dosage: 25 MG,1 IN 1 D, PO, 15-10MG, DAILY, PO,  5 MG, QD X 21D. PO
     Route: 048
     Dates: start: 20101001, end: 20110505
  2. REVLIMID [Suspect]
     Indication: MULTIPLE MYELOMA
     Dosage: 25 MG,1 IN 1 D, PO, 15-10MG, DAILY, PO,  5 MG, QD X 21D. PO
     Route: 048
     Dates: start: 20100501, end: 20100101
  3. REVLIMID [Suspect]
     Indication: MULTIPLE MYELOMA
     Dosage: 25 MG,1 IN 1 D, PO, 15-10MG, DAILY, PO,  5 MG, QD X 21D. PO
     Route: 048
     Dates: start: 20091201

REACTIONS (2)
  - PYREXIA [None]
  - NASOPHARYNGITIS [None]
